FAERS Safety Report 5449747-9 (Version None)
Quarter: 2007Q3

REPORT INFORMATION
  Report Type: 
  Country: None (occurrence: None)
  Receive Date: 20070912
  Receipt Date: 20070831
  Transmission Date: 20080115
  Serious: Yes (Hospitalization)
  Sender: FDA-Public Use
  Company Number: GBWYE186317AUG07

PATIENT
  Sex: Female

DRUGS (4)
  1. EFFEXOR XR [Suspect]
     Route: 048
     Dates: start: 20070725
  2. CARBAMAZEPINE [Concomitant]
     Dosage: UNKNOWN
  3. LORAZEPAM [Concomitant]
     Dosage: UNKNOWN
  4. WARFARIN SODIUM [Concomitant]
     Dosage: UNKNOWN

REACTIONS (4)
  - ABDOMINAL PAIN UPPER [None]
  - HEADACHE [None]
  - LETHARGY [None]
  - MOVEMENT DISORDER [None]
